FAERS Safety Report 9146696 (Version 1)
Quarter: 2013Q1

REPORT INFORMATION
  Report Type: Spontaneous
  Country: US (occurrence: None)
  Receive Date: 20130228
  Receipt Date: 20130228
  Transmission Date: 20140127
  Serious: Yes (Other)
  Sender: FDA-Public Use
  Company Number: None

PATIENT
  Sex: Female
  Weight: 56.7 kg

DRUGS (1)
  1. LEVALBUTEROL HCL [Suspect]
     Indication: ASTHMA
     Dosage: 1.25MG/3ML USED FOR A COUGH TREATMENT VIA NEBULIZER

REACTIONS (2)
  - Tremor [None]
  - Tachycardia [None]
